FAERS Safety Report 9643575 (Version 1)
Quarter: 2013Q4

REPORT INFORMATION
  Report Type: Spontaneous
  Country: CA (occurrence: CA)
  Receive Date: 20131024
  Receipt Date: 20131024
  Transmission Date: 20140711
  Serious: Yes (Disabling)
  Sender: FDA-Public Use
  Company Number: CA-VIIV HEALTHCARE LIMITED-A1044209A

PATIENT
  Age: 61 Year
  Sex: Female
  Weight: 88.2 kg

DRUGS (6)
  1. KIVEXA [Suspect]
     Indication: HIV INFECTION
     Route: 048
     Dates: start: 20121011, end: 20130611
  2. RALTEGRAVIR [Suspect]
  3. MULTIVITAMIN [Concomitant]
  4. VALTREX [Concomitant]
  5. NEXIUM [Concomitant]
  6. CALCIUM + VIT D [Concomitant]

REACTIONS (12)
  - Pruritus [Recovered/Resolved]
  - Erythema [Recovered/Resolved]
  - Skin burning sensation [Recovered/Resolved]
  - Oral discomfort [Recovered/Resolved]
  - Oral mucosal erythema [Recovered/Resolved]
  - Migraine [Recovered/Resolved]
  - Dysgeusia [Recovered/Resolved]
  - Dyspepsia [Recovered/Resolved]
  - Headache [Recovered/Resolved]
  - Skin oedema [Recovered/Resolved]
  - Tracheal pain [Unknown]
  - Oral pruritus [Unknown]
